FAERS Safety Report 8644531 (Version 3)
Quarter: 2012Q4

REPORT INFORMATION
  Report Type: Report from Study
  Country: BF (occurrence: BF)
  Receive Date: 20120629
  Receipt Date: 20121024
  Transmission Date: 20130627
  Serious: Yes (Other)
  Sender: FDA-Public Use
  Company Number: BF-GILEAD-2012-0057065

PATIENT
  Age: 32 Year
  Sex: Female

DRUGS (4)
  1. EMTRICITABINE/TENOFOVIR DISOPROXIL FUMARATE [Suspect]
     Indication: HIV INFECTION
     Dosage: 1 DF, QD
     Route: 048
     Dates: start: 20100626
  2. LOPINAVIR W/RITONAVIR [Suspect]
     Indication: HIV INFECTION
     Dosage: 2 DF, BID
     Route: 048
     Dates: start: 20100626
  3. CO-TRIMOXAZOLE [Concomitant]
     Indication: OPPORTUNISTIC INFECTION PROPHYLAXIS
     Dosage: 960 mg, QD
     Dates: start: 20050915
  4. DEPO-PROVERA [Concomitant]
     Indication: CHEMICAL CONTRACEPTION
     Dosage: 150 mg, QD
     Dates: start: 20110407

REACTIONS (1)
  - Hypercholesterolaemia [Recovered/Resolved]
